FAERS Safety Report 10009588 (Version 1)
Quarter: 2014Q1

REPORT INFORMATION
  Report Type: Spontaneous
  Country: US (occurrence: US)
  Receive Date: 20140313
  Receipt Date: 20140313
  Transmission Date: 20141002
  Serious: Yes (Other)
  Sender: FDA-Public Use
  Company Number: US-GILEAD-2014-0096148

PATIENT
  Age: 57 Year
  Sex: Male

DRUGS (21)
  1. RANOLAZINE [Suspect]
     Indication: ANGINA PECTORIS
     Dosage: 1000 MG, BID
     Route: 048
  2. RANOLAZINE [Interacting]
     Dosage: 500 MG, BID
     Route: 048
  3. SIROLIMUS [Interacting]
     Indication: IMMUNOSUPPRESSANT DRUG THERAPY
     Dosage: 7 MG, QD
  4. SIROLIMUS [Interacting]
     Dosage: 6 MG, UNK
  5. SIROLIMUS [Interacting]
     Dosage: 5 MG, QD
  6. SIROLIMUS [Interacting]
     Dosage: 6 MG, QD
  7. SIROLIMUS [Interacting]
     Dosage: 5 MG, UNK
  8. SIROLIMUS [Interacting]
     Dosage: 3 UNK, UNK
     Route: 048
  9. SIROLIMUS [Interacting]
     Dosage: 2-3 MG QD
     Route: 048
  10. PREDNISONE [Concomitant]
  11. TACROLIMUS [Concomitant]
     Dosage: 1 MG, QD
  12. CLOPIDOGREL [Concomitant]
  13. ASPIRIN [Concomitant]
  14. AMLODIPINE BESYLATE [Concomitant]
  15. LISINOPRIL [Concomitant]
     Dosage: 10 MG, QD
  16. METOPROLOL [Concomitant]
     Dosage: 100 MG, BID
  17. FUROSEMIDE [Concomitant]
     Dosage: 20 MG, BID
  18. INSULIN LISPRO [Concomitant]
  19. NITROGLYCERIN [Concomitant]
     Dosage: UNK, PRN
     Route: 060
  20. HYDROCODONE HYDROCHLORIDE [Concomitant]
     Dosage: UNK, PRN
  21. VITAMIN D NOS [Concomitant]

REACTIONS (7)
  - Angina pectoris [Unknown]
  - Dehydration [Unknown]
  - Malaise [Unknown]
  - Pain [Unknown]
  - Oral surgery [Unknown]
  - Immunosuppressant drug level increased [Recovered/Resolved]
  - Drug interaction [Unknown]
